FAERS Safety Report 9232755 (Version 3)
Quarter: 2013Q2

REPORT INFORMATION
  Report Type: Spontaneous
  Country: US (occurrence: US)
  Receive Date: 20130416
  Receipt Date: 20130522
  Transmission Date: 20140414
  Serious: Yes (Other)
  Sender: FDA-Public Use
  Company Number: US-JNJFOC-20130405295

PATIENT
  Age: 0 Year
  Sex: 0

DRUGS (2)
  1. ZYTIGA [Suspect]
     Indication: FOETAL EXPOSURE DURING PREGNANCY
     Route: 064
  2. PRENATAL VITAMINS [Concomitant]
     Indication: FOETAL EXPOSURE DURING PREGNANCY
     Route: 065

REACTIONS (3)
  - Premature baby [Not Recovered/Not Resolved]
  - Cardiac murmur [Unknown]
  - Intraventricular haemorrhage [Unknown]
